FAERS Safety Report 6203880-2 (Version None)
Quarter: 2009Q2

REPORT INFORMATION
  Report Type: 
  Country: None (occurrence: None)
  Receive Date: 20090527
  Receipt Date: 20090519
  Transmission Date: 20091009
  Serious: Yes (Hospitalization)
  Sender: FDA-Public Use
  Company Number: HQWYE396218DEC06

PATIENT
  Age: 17 Year
  Sex: Male

DRUGS (10)
  1. EFFEXOR [Suspect]
     Indication: DEPRESSION
     Route: 048
     Dates: start: 20061201, end: 20061201
  2. EFFEXOR [Suspect]
     Indication: GENERALISED ANXIETY DISORDER
     Route: 048
     Dates: start: 20061201, end: 20061201
  3. EFFEXOR [Suspect]
     Indication: MIGRAINE
     Dates: start: 20061201, end: 20061201
  4. EFFEXOR [Suspect]
     Dosage: ^37.5 MG IN THE MORNING AND AN EXTRA HALF-TABLET OF 37.5 MG IN THE EVENING^
     Dates: start: 20061201, end: 20061201
  5. EFFEXOR [Suspect]
     Dates: start: 20061201
  6. IBUPROFEN [Concomitant]
     Indication: MIGRAINE
     Dosage: TAKEN ^REGULARLY^
  7. ELETRIPTAN HYDROBROMIDE [Suspect]
     Indication: MIGRAINE PROPHYLAXIS
  8. ACETAMINOPHEN AND HYDROCODONE BITARTRATE [Concomitant]
     Indication: PAIN
     Dosage: ^TOOK THIS DOSE MAXIMALLY ABOUT 1 OR 2 TIMES PER WEEK^
  9. LAMICTAL [Suspect]
     Indication: MIGRAINE
     Dosage: UNKNOWN
  10. DIPHENHYDRAMINE HCL [Suspect]
     Indication: SLEEP DISORDER
     Dosage: UNKNOWN

REACTIONS (5)
  - DISORIENTATION [None]
  - DRUG INEFFECTIVE [None]
  - HALLUCINATION, TACTILE [None]
  - HALLUCINATION, VISUAL [None]
  - MENTAL STATUS CHANGES [None]
